FAERS Safety Report 5407389-5 (Version None)
Quarter: 2007Q3

REPORT INFORMATION
  Report Type: 
  Country: None (occurrence: None)
  Receive Date: 20070801
  Receipt Date: 20070720
  Transmission Date: 20080115
  Serious: No
  Sender: FDA-Public Use
  Company Number: TCI2007A03487

PATIENT
  Age: 53 Year
  Sex: Male

DRUGS (6)
  1. ACTOS [Suspect]
     Indication: TYPE 2 DIABETES MELLITUS
     Dosage: 30 MG (30 MG, 1 IN 1 D) PER ORAL
     Route: 048
     Dates: start: 20070530, end: 20070713
  2. OLMESARTAN MEDOXOMIL [Concomitant]
  3. SEIBULE (MIGLITOL) [Concomitant]
  4. NORVASC [Concomitant]
  5. VOGLIBOSE [Concomitant]
  6. AMARYL [Concomitant]

REACTIONS (4)
  - CARDIAC FAILURE [None]
  - CARDIOMEGALY [None]
  - OEDEMA PERIPHERAL [None]
  - WEIGHT INCREASED [None]
